FAERS Safety Report 25147329 (Version 3)
Quarter: 2025Q2

REPORT INFORMATION
  Report Type: Spontaneous
  Country: US (occurrence: US)
  Receive Date: 20250401
  Receipt Date: 20250618
  Transmission Date: 20250716
  Serious: No
  Sender: JOHNSON AND JOHNSON
  Company Number: US-JNJFOC-20250380421

PATIENT
  Sex: Male

DRUGS (1)
  1. SPRAVATO [Suspect]
     Active Substance: ESKETAMINE
     Indication: Product used for unknown indication
     Route: 045

REACTIONS (6)
  - Device malfunction [Unknown]
  - Device malfunction [Unknown]
  - Device adhesion issue [Unknown]
  - Device issue [Unknown]
  - Off label use [Unknown]
  - Incorrect dose administered by device [Unknown]
